FAERS Safety Report 4818010-9 (Version None)
Quarter: 2005Q4

REPORT INFORMATION
  Report Type: 
  Country: None (occurrence: None)
  Receive Date: 20051102
  Receipt Date: 20050929
  Transmission Date: 20060501
  Serious: Yes (Other)
  Sender: FDA-Public Use
  Company Number: DE-ROCHE-419281

PATIENT
  Age: 80 Year
  Sex: Male

DRUGS (1)
  1. BONDRONAT [Suspect]
     Route: 042

REACTIONS (1)
  - METABOLIC ACIDOSIS [None]
